FAERS Safety Report 7784538-5 (Version None)
Quarter: 2011Q3

REPORT INFORMATION
  Report Type: 
  Country: None (occurrence: None)
  Receive Date: 20110928
  Receipt Date: 20110916
  Transmission Date: 20111222
  Serious: Yes (Hospitalization, Other)
  Sender: FDA-Public Use
  Company Number: US-US-EMD SERONO, INC.-7018496

PATIENT
  Sex: Male
  Weight: 64 kg

DRUGS (3)
  1. TRAZODONE HCL [Concomitant]
     Indication: INSOMNIA
  2. REBIF [Suspect]
     Indication: MULTIPLE SCLEROSIS
     Route: 058
     Dates: start: 20081210, end: 20110801
  3. UNSPECIFIED MEDICATIONS [Concomitant]

REACTIONS (29)
  - MUSCULOSKELETAL CHEST PAIN [None]
  - SUICIDAL IDEATION [None]
  - PANIC ATTACK [None]
  - SWELLING [None]
  - DYSARTHRIA [None]
  - ERYTHEMA [None]
  - HEADACHE [None]
  - MULTIPLE SCLEROSIS RELAPSE [None]
  - PYREXIA [None]
  - FATIGUE [None]
  - GRAND MAL CONVULSION [None]
  - EATING DISORDER [None]
  - HYPOAESTHESIA [None]
  - BACK PAIN [None]
  - HEART RATE DECREASED [None]
  - VOMITING [None]
  - ANGER [None]
  - DEPRESSION [None]
  - COAGULOPATHY [None]
  - NECK PAIN [None]
  - FEELING ABNORMAL [None]
  - ASTHENIA [None]
  - NAUSEA [None]
  - EYE DISORDER [None]
  - DYSPNOEA [None]
  - HYPERSOMNIA [None]
  - WEIGHT INCREASED [None]
  - GAIT DISTURBANCE [None]
  - RASH [None]
